FAERS Safety Report 5149531-X (Version None)
Quarter: 2006Q4

REPORT INFORMATION
  Report Type: 
  Country: None (occurrence: None)
  Receive Date: 20061113
  Receipt Date: 20060320
  Transmission Date: 20070319
  Serious: No
  Sender: FDA-Public Use
  Company Number: US-GLAXOSMITHKLINE-A0598852A

PATIENT
  Sex: Male

DRUGS (1)
  1. COREG [Suspect]

REACTIONS (3)
  - LOCAL SWELLING [None]
  - PAIN IN EXTREMITY [None]
  - SKIN DISCOLOURATION [None]
